FAERS Safety Report 23208077 (Version 2)
Quarter: 2024Q1

REPORT INFORMATION
  Report Type: Report from Study
  Country: US (occurrence: US)
  Receive Date: 20231121
  Receipt Date: 20240220
  Transmission Date: 20240410
  Serious: Yes (Life-Threatening, Other)
  Sender: FDA-Public Use
  Company Number: US-BEH-2023165192

PATIENT
  Age: 59 Year
  Sex: Male
  Weight: 94.331 kg

DRUGS (4)
  1. BERINERT [Suspect]
     Active Substance: HUMAN C1-ESTERASE INHIBITOR
     Indication: Hereditary angioedema
     Dosage: 6000 INTERNATIONAL UNIT, BIW
     Route: 058
  2. BERINERT [Suspect]
     Active Substance: HUMAN C1-ESTERASE INHIBITOR
     Indication: Prophylaxis
     Dosage: 2800 INTERNATIONAL UNIT/KILOGRAM, BIW
     Route: 058
  3. BERINERT [Suspect]
     Active Substance: HUMAN C1-ESTERASE INHIBITOR
     Dosage: 2800 INTERNATIONAL UNIT/KILOGRAM, BIW
     Route: 058
     Dates: start: 20231106, end: 20231106
  4. BERINERT [Suspect]
     Active Substance: HUMAN C1-ESTERASE INHIBITOR
     Dosage: 2800 INTERNATIONAL UNIT/KILOGRAM, BIW
     Route: 058
     Dates: start: 20240207, end: 20240207

REACTIONS (14)
  - Restlessness [Unknown]
  - Hereditary angioedema [Recovering/Resolving]
  - Product dose omission in error [Recovering/Resolving]
  - Abdominal pain upper [Unknown]
  - Pain [Unknown]
  - Tremor [Unknown]
  - Hyperhidrosis [Unknown]
  - Bowel movement irregularity [Unknown]
  - Abdominal pain upper [Not Recovered/Not Resolved]
  - Fatigue [Not Recovered/Not Resolved]
  - Hereditary angioedema [Unknown]
  - Pain [Unknown]
  - Bowel movement irregularity [Unknown]
  - Abdominal discomfort [Unknown]

NARRATIVE: CASE EVENT DATE: 20230101
